FAERS Safety Report 10050323 (Version 1)
Quarter: 2014Q1

REPORT INFORMATION
  Report Type: Spontaneous
  Country: US (occurrence: None)
  Receive Date: 20140328
  Receipt Date: 20140328
  Transmission Date: 20141002
  Serious: Yes (Death, Other)
  Sender: FDA-Public Use
  Company Number: AUR-APL-2014-03624

PATIENT
  Age: 47 Year
  Sex: Male

DRUGS (6)
  1. ALPRAZOLAM (ALPRAZOLAM) [Suspect]
     Indication: PRODUCT USED FOR UNKNOWN INDICATION
  2. HEROIN (DIAMORPHINE) (DIAMORPHINE) [Suspect]
     Indication: PRODUCT USED FOR UNKNOWN INDICATION
     Route: 048
  3. COCAINE (COCAINE) [Suspect]
     Indication: PRODUCT USED FOR UNKNOWN INDICATION
  4. HYDROXYZINE (HYDROXYZINE) [Suspect]
     Indication: PRODUCT USED FOR UNKNOWN INDICATION
  5. DEXTROMETHORPHAN (DEXTROMETHORPHAN) [Suspect]
     Indication: PRODUCT USED FOR UNKNOWN INDICATION
  6. QUININE [Suspect]
     Indication: PRODUCT USED FOR UNKNOWN INDICATION

REACTIONS (6)
  - Poisoning [None]
  - Completed suicide [None]
  - Exposure via ingestion [None]
  - Exposure via inhalation [None]
  - Cardiac arrest [None]
  - Respiratory arrest [None]
